FAERS Safety Report 9502686 (Version 4)
Quarter: 2014Q1

REPORT INFORMATION
  Report Type: Report from Study
  Country: DE (occurrence: DE)
  Receive Date: 20130906
  Receipt Date: 20140224
  Transmission Date: 20141002
  Serious: Yes (Hospitalization)
  Sender: FDA-Public Use
  Company Number: DE-ROCHE-1270882

PATIENT
  Age: 62 Year
  Sex: Female
  Weight: 52 kg

DRUGS (3)
  1. BEVACIZUMAB [Suspect]
     Indication: OVARIAN CANCER
     Dosage: LAST DOSE PRIOR TO PYELONEPHRITIS ON 28/AUG/2013?LAST DOSE PRIOR TO SEROCELE ON 19/SEP/2013 AT A DOS
     Route: 042
     Dates: start: 20130718
  2. CARBOPLATIN [Suspect]
     Indication: OVARIAN CANCER
     Dosage: LAST DOSE PRIOR TO PYELONEPHRITIS ON 29/AUG/2013?LAST DOSE PRIOR TO SEROCELE ON 19/SEP/2013 AT DOSE
     Route: 042
     Dates: start: 20130718
  3. PACLITAXEL [Suspect]
     Indication: OVARIAN CANCER
     Dosage: LAST DOSE PRIOR TO PYELONEPHRITIS ON 29/AUG/2013?LAST DOSE PRIOR TO SEROCELE ON 19/SEP/2013 AT DOSE
     Route: 042
     Dates: start: 20130718

REACTIONS (2)
  - Pyelonephritis [Recovered/Resolved]
  - Cyst [Recovered/Resolved]
